FAERS Safety Report 10218568 (Version 1)
Quarter: 2014Q2

REPORT INFORMATION
  Report Type: Spontaneous
  Country: US (occurrence: US)
  Receive Date: 20140605
  Receipt Date: 20140605
  Transmission Date: 20141212
  Serious: No
  Sender: FDA-Public Use
  Company Number: US-009507513-1405USA015729

PATIENT
  Sex: Male

DRUGS (4)
  1. CLARITIN CHEWABLE TABLETS [Suspect]
     Indication: HYPERSENSITIVITY
     Dosage: 1 DF, UNKNOWN
     Route: 048
  2. CLARITIN CHEWABLE TABLETS [Suspect]
     Dosage: FULL DOSE RIGHT BEFORE BED
     Route: 048
  3. CLARITIN CHEWABLE TABLETS [Suspect]
     Dosage: UNK, QAM
     Route: 048
  4. CLARITIN CHEWABLE TABLETS [Suspect]
     Dosage: HALF DOSE OF A MORNING AND HALF BEFORE BED
     Route: 048

REACTIONS (2)
  - Throat irritation [Unknown]
  - Drug effect incomplete [Unknown]
